FAERS Safety Report 6181259-X (Version None)
Quarter: 2009Q2

REPORT INFORMATION
  Report Type: 
  Country: None (occurrence: None)
  Receive Date: 20090506
  Receipt Date: 20090430
  Transmission Date: 20091009
  Serious: Yes (Hospitalization)
  Sender: FDA-Public Use
  Company Number: US-ASTRAZENECA-2009UW10852

PATIENT
  Age: 26 Year
  Sex: Female

DRUGS (7)
  1. SEROQUEL [Suspect]
     Indication: DEPRESSION
     Route: 048
     Dates: start: 20090201
  2. SEROQUEL [Suspect]
     Indication: ANXIETY
     Route: 048
     Dates: start: 20090201
  3. EFFEXOR [Suspect]
     Indication: DEPRESSION
     Route: 048
     Dates: start: 20090201
  4. EFFEXOR [Suspect]
     Indication: ANXIETY
     Route: 048
     Dates: start: 20090201
  5. LOW-OGESTREL-21 [Suspect]
     Indication: ORAL CONTRACEPTION
     Dosage: 1 TABLET DAILY
     Dates: start: 20090101, end: 20090415
  6. LOW-OGESTREL-21 [Suspect]
     Dosage: 1 TABLET DAILY
     Dates: start: 20090416, end: 20090420
  7. PAXIL [Suspect]
     Route: 048
     Dates: start: 20090331

REACTIONS (9)
  - ANGER [None]
  - ANXIETY [None]
  - DEPRESSION [None]
  - FATIGUE [None]
  - HEADACHE [None]
  - HYPERHIDROSIS [None]
  - NAUSEA [None]
  - PARANOIA [None]
  - SUICIDAL IDEATION [None]
